FAERS Safety Report 25180922 (Version 2)
Quarter: 2025Q2

REPORT INFORMATION
  Report Type: Spontaneous
  Country: JP (occurrence: JP)
  Receive Date: 20250409
  Receipt Date: 20250509
  Transmission Date: 20250717
  Serious: Yes (Death, Other)
  Sender: MERCK SHARP & DOHME LLC
  Company Number: JP-009507513-2274567

PATIENT
  Age: 46 Year
  Sex: Female

DRUGS (5)
  1. KEYTRUDA [Suspect]
     Active Substance: PEMBROLIZUMAB
     Indication: Cervix carcinoma stage IV
  2. KEYTRUDA [Suspect]
     Active Substance: PEMBROLIZUMAB
     Indication: Cervix carcinoma stage IV
  3. BEVACIZUMAB [Concomitant]
     Active Substance: BEVACIZUMAB
     Indication: Cervix carcinoma stage IV
  4. DOCETAXEL [Concomitant]
     Active Substance: DOCETAXEL
     Indication: Cervix carcinoma stage IV
  5. CYCLOPHOSPHAMIDE [Concomitant]
     Active Substance: CYCLOPHOSPHAMIDE
     Indication: Cervix carcinoma stage IV

REACTIONS (4)
  - Malignant neoplasm progression [Fatal]
  - Guillain-Barre syndrome [Unknown]
  - Full blood count decreased [Unknown]
  - Neuropathy peripheral [Unknown]
